FAERS Safety Report 9342111 (Version 1)
Quarter: 2013Q2

REPORT INFORMATION
  Report Type: Spontaneous
  Country: US (occurrence: US)
  Receive Date: 20130611
  Receipt Date: 20130611
  Transmission Date: 20140414
  Serious: No
  Sender: FDA-Public Use
  Company Number: US-BAYER-2013-067492

PATIENT
  Age: 74 Year
  Sex: Female
  Weight: 63.49 kg

DRUGS (4)
  1. ALEVE TABLET [Suspect]
     Indication: NASAL CONGESTION
     Dosage: UNK, OTHER FREQUENCY
     Route: 048
     Dates: start: 2006
  2. ALLEGRA [Concomitant]
  3. LISINOPRIL [Concomitant]
  4. CRESTOR [Concomitant]

REACTIONS (1)
  - Pre-existing condition improved [None]
